FAERS Safety Report 19353174 (Version 6)
Quarter: 2022Q1

REPORT INFORMATION
  Report Type: Spontaneous
  Country: US (occurrence: US)
  Receive Date: 20210531
  Receipt Date: 20220131
  Transmission Date: 20220424
  Serious: Yes (Disabling, Other)
  Sender: FDA-Public Use
  Company Number: US-PFIZER INC-2020497059

PATIENT
  Age: 56 Year
  Sex: Male
  Weight: 86.183 kg

DRUGS (2)
  1. XELJANZ XR [Suspect]
     Active Substance: TOFACITINIB CITRATE
     Indication: Rheumatoid arthritis
     Dosage: 11 MG, DAILY
     Dates: start: 20201202
  2. XELJANZ XR [Suspect]
     Active Substance: TOFACITINIB CITRATE
     Indication: Pain

REACTIONS (4)
  - Gait inability [Unknown]
  - Rash [Unknown]
  - Drug withdrawal syndrome [Unknown]
  - Fatigue [Unknown]
